FAERS Safety Report 7347731-1 (Version None)
Quarter: 2011Q1

REPORT INFORMATION
  Report Type: 
  Country: None (occurrence: None)
  Receive Date: 20110303
  Receipt Date: 20110220
  Transmission Date: 20110831
  Serious: Yes (Hospitalization, Other)
  Sender: FDA-Public Use
  Company Number: ACO_21897_2011

PATIENT
  Age: 61 Year
  Sex: Female

DRUGS (1)
  1. AMPYRA [Suspect]
     Indication: MULTIPLE SCLEROSIS
     Dosage: 1O NG, Q 12 HRS, ORAL
     Route: 048
     Dates: start: 20110214, end: 20110220

REACTIONS (2)
  - AGITATION [None]
  - MENTAL STATUS CHANGES [None]
